FAERS Safety Report 20094268 (Version 9)
Quarter: 2023Q2

REPORT INFORMATION
  Report Type: Report from Study
  Country: US (occurrence: US)
  Receive Date: 20211122
  Receipt Date: 20230617
  Transmission Date: 20230722
  Serious: Yes (Hospitalization, Other)
  Sender: FDA-Public Use
  Company Number: US-NOVARTISTESTPH-NVSC2021US265573

PATIENT
  Age: 44 Year
  Sex: Female

DRUGS (2)
  1. KESIMPTA [Suspect]
     Active Substance: OFATUMUMAB
     Indication: Product used for unknown indication
     Dosage: 20 MG, QMO
     Route: 058
     Dates: start: 20211121
  2. BOTOX [Concomitant]
     Active Substance: ONABOTULINUMTOXINA
     Indication: Product used for unknown indication
     Dosage: UNK
     Route: 065
     Dates: start: 20220817

REACTIONS (11)
  - Cystitis [Unknown]
  - Kidney infection [Unknown]
  - Pneumonia aspiration [Unknown]
  - Postoperative wound infection [Unknown]
  - Multiple sclerosis pseudo relapse [Unknown]
  - Influenza like illness [Recovered/Resolved]
  - Fatigue [Recovered/Resolved]
  - Streptococcal infection [Unknown]
  - Upper respiratory tract infection bacterial [Unknown]
  - Illness [Unknown]
  - Dysphagia [Unknown]

NARRATIVE: CASE EVENT DATE: 20220501
